FAERS Safety Report 9827671 (Version 1)
Quarter: 2014Q1

REPORT INFORMATION
  Report Type: Spontaneous
  Country: US (occurrence: None)
  Receive Date: 20140116
  Receipt Date: 20140116
  Transmission Date: 20141002
  Serious: Yes (Life-Threatening, Other)
  Sender: FDA-Public Use
  Company Number: None

PATIENT
  Age: 62 Year
  Sex: Male
  Weight: 81.65 kg

DRUGS (2)
  1. WALGREENS PAIN RELIEVING PM [Suspect]
     Indication: BACK PAIN
     Dosage: 1 PILL
     Route: 048
     Dates: start: 20140104, end: 20140106
  2. WALGREENS PAIN RELIEVING PM [Suspect]
     Indication: INFLUENZA
     Dosage: 1 PILL
     Route: 048
     Dates: start: 20140104, end: 20140106

REACTIONS (3)
  - Abdominal pain lower [None]
  - Nausea [None]
  - Vomiting [None]
